FAERS Safety Report 7804315-6 (Version None)
Quarter: 2011Q4

REPORT INFORMATION
  Report Type: 
  Country: None (occurrence: None)
  Receive Date: 20111010
  Receipt Date: 20111003
  Transmission Date: 20120403
  Serious: Yes (Death, Hospitalization)
  Sender: FDA-Public Use
  Company Number: JP-B.I. PHARMACEUTICALS,INC./RIDGEFIELD-2011-BP-23151NB

PATIENT
  Age: 93 Year
  Sex: Female
  Weight: 30.5 kg

DRUGS (10)
  1. PRADAXA [Suspect]
     Indication: ATRIAL FIBRILLATION
     Dosage: 150 MG
     Route: 065
     Dates: start: 20110427, end: 20110525
  2. ZANTAC [Concomitant]
     Indication: HAEMORRHAGE PROPHYLAXIS
     Dosage: 300 MG
     Route: 065
  3. ASPIRIN [Concomitant]
     Indication: MYOCARDIAL INFARCTION
     Dosage: 100 MG
     Route: 065
     Dates: end: 20110525
  4. MICARDIS [Concomitant]
     Dosage: 20 MG
     Route: 065
  5. CLARITHROMYCIN [Concomitant]
     Indication: BRONCHITIS CHRONIC
     Dosage: 200 MG
     Route: 065
  6. FRANDOL S [Concomitant]
     Indication: ANGINA PECTORIS
     Dosage: 40 MG
     Route: 065
  7. DIART [Concomitant]
     Indication: CARDIAC FAILURE
     Dosage: 30 MG
     Route: 065
  8. DILTIAZEM HCL [Concomitant]
     Indication: ANGINA PECTORIS
     Dosage: 60 MG
     Route: 065
  9. GRAMALIL [Concomitant]
     Indication: AGITATION
     Dosage: 25 MG
     Route: 065
  10. SIGMART [Concomitant]
     Indication: ANGINA PECTORIS
     Dosage: 10 MG
     Route: 065

REACTIONS (1)
  - HAEMATOCHEZIA [None]
